FAERS Safety Report 13075363 (Version 1)
Quarter: 2016Q4

REPORT INFORMATION
  Report Type: Spontaneous
  Country: US (occurrence: US)
  Receive Date: 20161229
  Receipt Date: 20161229
  Transmission Date: 20170207
  Serious: Yes (Hospitalization, Other)
  Sender: FDA-Public Use
  Company Number: None

PATIENT
  Age: 76 Year
  Sex: Female
  Weight: 60.38 kg

DRUGS (18)
  1. CRESTOR [Concomitant]
     Active Substance: ROSUVASTATIN CALCIUM
  2. VITAMIN B12 [Concomitant]
     Active Substance: CYANOCOBALAMIN
  3. FISH OIL [Concomitant]
     Active Substance: FISH OIL
  4. DETROL LA (TALTERODINE) [Concomitant]
  5. OXYGEN. [Concomitant]
     Active Substance: OXYGEN
  6. ASPIRIN. [Concomitant]
     Active Substance: ASPIRIN
  7. OMEGA 3 [Concomitant]
     Active Substance: OMEGA-3 FATTY ACIDS
  8. MAGNESIUM OXIDE. [Concomitant]
     Active Substance: MAGNESIUM OXIDE
  9. FLAX SEED [Concomitant]
     Active Substance: FLAX SEED
  10. BIOTIN [Concomitant]
     Active Substance: BIOTIN
  11. NITROGLYCRIN SPRAY [Concomitant]
  12. PEPCID [Concomitant]
     Active Substance: FAMOTIDINE
  13. CALTRATE [Concomitant]
     Active Substance: CALCIUM CARBONATE
  14. PROLIA [Suspect]
     Active Substance: DENOSUMAB
     Indication: BONE DENSITY DECREASED
     Dosage: 60 MILLIGRAMS 1 SHOT EVERY 6 MONTHS INJECTION
     Dates: start: 20160919, end: 20160919
  15. VITAMIN D2 [Concomitant]
     Active Substance: ERGOCALCIFEROL
  16. FLAXSEED [Concomitant]
     Active Substance: FLAX SEED
  17. LOPRESSOR (METOPROLOL) [Concomitant]
  18. PROBIOTIC [Concomitant]
     Active Substance: PROBIOTICS NOS

REACTIONS (7)
  - Dizziness [None]
  - Ear pain [None]
  - Vertigo [None]
  - Seizure [None]
  - Confusional state [None]
  - Alopecia [None]
  - Palpitations [None]

NARRATIVE: CASE EVENT DATE: 20160919
